FAERS Safety Report 8335071-3 (Version None)
Quarter: 2012Q2

REPORT INFORMATION
  Report Type: 
  Country: None (occurrence: None)
  Receive Date: 20120503
  Receipt Date: 20100421
  Transmission Date: 20120825
  Serious: No
  Sender: FDA-Public Use
  Company Number: US-TEVA-2010002327

PATIENT
  Sex: Male

DRUGS (1)
  1. NUVIGIL [Suspect]
     Indication: HYPERVIGILANCE
     Dosage: 150 MILLIGRAM;
     Route: 048

REACTIONS (8)
  - CHEST PAIN [None]
  - DYSPNOEA [None]
  - IMPAIRED DRIVING ABILITY [None]
  - WEIGHT INCREASED [None]
  - CONFUSIONAL STATE [None]
  - BALANCE DISORDER [None]
  - SOMNOLENCE [None]
  - FATIGUE [None]
